FAERS Safety Report 7711325-6 (Version None)
Quarter: 2011Q3

REPORT INFORMATION
  Report Type: 
  Country: None (occurrence: None)
  Receive Date: 20110817
  Receipt Date: 20110804
  Transmission Date: 20111222
  Serious: Yes (Life-Threatening, Hospitalization)
  Sender: FDA-Public Use
  Company Number: US-145215

PATIENT
  Sex: Female
  Weight: 110 kg

DRUGS (9)
  1. AZITHROMYCIN [Concomitant]
  2. THERAFLU [Concomitant]
  3. CELEBREX [Concomitant]
  4. NUVARING [Concomitant]
  5. WELLBUTRIN [Concomitant]
  6. CELEXA [Concomitant]
  7. WINRHO SDF LIQUID [Suspect]
  8. WINRHO SDF LIQUID [Suspect]
     Indication: IDIOPATHIC THROMBOCYTOPENIC PURPURA
     Dosage: (45.45 UG/KG TOTAL INTRAVENOUS (NOT OTHERWISE SPECIFIED) ; (INTRAVENOUS (NOT OTHERWISE SPECIFIED)
     Route: 042
     Dates: start: 20110628, end: 20110628
  9. WINRHO SDF LIQUID [Suspect]
     Indication: IDIOPATHIC THROMBOCYTOPENIC PURPURA
     Dosage: (45.45 UG/KG TOTAL INTRAVENOUS (NOT OTHERWISE SPECIFIED) ; (INTRAVENOUS (NOT OTHERWISE SPECIFIED)
     Route: 042
     Dates: start: 20110628, end: 20110628

REACTIONS (52)
  - PLATELET COUNT DECREASED [None]
  - LYMPHOCYTE PERCENTAGE INCREASED [None]
  - BLOOD LACTIC ACID INCREASED [None]
  - RESPIRATORY RATE INCREASED [None]
  - COGNITIVE DISORDER [None]
  - ASTHENIA [None]
  - SINUS TACHYCARDIA [None]
  - STATUS EPILEPTICUS [None]
  - HYPOXIC-ISCHAEMIC ENCEPHALOPATHY [None]
  - ENCEPHALOPATHY [None]
  - BLOOD ALKALINE PHOSPHATASE INCREASED [None]
  - HAEMOGLOBIN DECREASED [None]
  - VIRAL UPPER RESPIRATORY TRACT INFECTION [None]
  - LETHARGY [None]
  - CONFUSIONAL STATE [None]
  - TREMOR [None]
  - METABOLIC ENCEPHALOPATHY [None]
  - BLOOD PH INCREASED [None]
  - PCO2 DECREASED [None]
  - CHILLS [None]
  - RESTLESSNESS [None]
  - HYPOTENSION [None]
  - BLOOD SODIUM DECREASED [None]
  - BLOOD GLUCOSE INCREASED [None]
  - BLOOD LACTATE DEHYDROGENASE INCREASED [None]
  - ELECTROCARDIOGRAM ST-T CHANGE [None]
  - ASPARTATE AMINOTRANSFERASE INCREASED [None]
  - MOTOR DYSFUNCTION [None]
  - CONDITION AGGRAVATED [None]
  - AGGRESSION [None]
  - WHITE BLOOD CELL COUNT INCREASED [None]
  - CARBON DIOXIDE DECREASED [None]
  - BLOOD URINE PRESENT [None]
  - BLOOD BICARBONATE DECREASED [None]
  - COMA [None]
  - RENAL FAILURE [None]
  - ANAPHYLACTOID REACTION [None]
  - MENTAL IMPAIRMENT [None]
  - DEPRESSED LEVEL OF CONSCIOUSNESS [None]
  - BLOOD BILIRUBIN INCREASED [None]
  - GRAND MAL CONVULSION [None]
  - ACUTE RESPIRATORY FAILURE [None]
  - MENINGITIS [None]
  - ELECTROENCEPHALOGRAM ABNORMAL [None]
  - PNEUMONIA [None]
  - ALANINE AMINOTRANSFERASE INCREASED [None]
  - INTERNATIONAL NORMALISED RATIO INCREASED [None]
  - ACTIVATED PARTIAL THROMBOPLASTIN TIME PROLONGED [None]
  - PYREXIA [None]
  - BLOOD CREATININE INCREASED [None]
  - TOXIC ENCEPHALOPATHY [None]
  - PO2 INCREASED [None]
